FAERS Safety Report 7556178-4 (Version None)
Quarter: 2011Q2

REPORT INFORMATION
  Report Type: 
  Country: None (occurrence: None)
  Receive Date: 20110620
  Receipt Date: 20110609
  Transmission Date: 20111010
  Serious: No
  Sender: FDA-Public Use
  Company Number: US-BIOGENIDEC-2011BI021375

PATIENT
  Age: 50 Year
  Sex: Female

DRUGS (2)
  1. AVONEX [Suspect]
     Indication: MULTIPLE SCLEROSIS
     Route: 030
     Dates: start: 20081107
  2. AVONEX [Suspect]
     Route: 030
     Dates: start: 20031214, end: 20080401

REACTIONS (2)
  - BLADDER DISORDER [None]
  - MULTIPLE SCLEROSIS RELAPSE [None]
